FAERS Safety Report 7750269-0 (Version None)
Quarter: 2011Q3

REPORT INFORMATION
  Report Type: 
  Country: None (occurrence: None)
  Receive Date: 20110914
  Receipt Date: 20110901
  Transmission Date: 20111222
  Serious: Yes (Other)
  Sender: FDA-Public Use
  Company Number: US-ELI_LILLY_AND_COMPANY-US201109001367

PATIENT
  Sex: Female

DRUGS (1)
  1. FORTEO [Suspect]
     Dosage: UNK, UNKNOWN

REACTIONS (7)
  - INTERVERTEBRAL DISC PROTRUSION [None]
  - HYPOAESTHESIA [None]
  - ARTHRITIS [None]
  - BACK PAIN [None]
  - FALL [None]
  - ARTHRALGIA [None]
  - SPINAL DISORDER [None]
